FAERS Safety Report 20132573 (Version 6)
Quarter: 2022Q2

REPORT INFORMATION
  Report Type: Report from Study
  Country: US (occurrence: US)
  Receive Date: 20211130
  Receipt Date: 20220602
  Transmission Date: 20220721
  Serious: No
  Sender: FDA-Public Use
  Company Number: US-NOVARTISTESTPH-NVSC2021US272302

PATIENT
  Sex: Male

DRUGS (1)
  1. ENTRESTO [Suspect]
     Active Substance: SACUBITRIL\VALSARTAN
     Indication: Cardiac failure
     Dosage: 50 MG, (24/26) BID
     Route: 048
     Dates: start: 20211017

REACTIONS (6)
  - Weight decreased [Recovering/Resolving]
  - Vision blurred [Unknown]
  - Dry eye [Unknown]
  - Heart rate abnormal [Unknown]
  - Cough [Unknown]
  - Product use in unapproved indication [Unknown]
